FAERS Safety Report 20854710 (Version 2)
Quarter: 2022Q3

REPORT INFORMATION
  Report Type: Spontaneous
  Country: US (occurrence: US)
  Receive Date: 20220520
  Receipt Date: 20220701
  Transmission Date: 20221027
  Serious: Yes (Other)
  Sender: FDA-Public Use
  Company Number: US-ORGANON-O2205USA001416

PATIENT
  Sex: Female
  Weight: 93.878 kg

DRUGS (1)
  1. NEXPLANON [Suspect]
     Active Substance: ETONOGESTREL
     Indication: Contraception
     Dosage: 68 MG IMPLANT EVERY 3 YEARS, LEFT ARM
     Route: 059
     Dates: start: 20220125, end: 20220516

REACTIONS (5)
  - Device expulsion [Recovered/Resolved]
  - Device dislocation [Recovered/Resolved]
  - Implant site extravasation [Recovering/Resolving]
  - Implant site abscess [Recovering/Resolving]
  - Implant site injury [Unknown]

NARRATIVE: CASE EVENT DATE: 20220101
